FAERS Safety Report 13982838 (Version 2)
Quarter: 2017Q3

REPORT INFORMATION
  Report Type: Report from Study
  Country: IT (occurrence: IT)
  Receive Date: 20170918
  Receipt Date: 20170921
  Transmission Date: 20171128
  Serious: Yes (Other)
  Sender: FDA-Public Use
  Company Number: IT-ROCHE-1992589

PATIENT
  Age: 54 Year
  Sex: Male

DRUGS (6)
  1. TIVICAY [Concomitant]
     Active Substance: DOLUTEGRAVIR SODIUM
     Indication: HIV INFECTION
     Dosage: 50 MG ORAL USE - BOTTLE (HDPE) - 30 TABLETS
     Route: 048
  2. RIBAVIRIN. [Suspect]
     Active Substance: RIBAVIRIN
     Indication: CHRONIC HEPATITIS C
     Route: 048
     Dates: start: 20150302, end: 20150810
  3. ALBUMIN [Concomitant]
     Active Substance: ALBUMIN HUMAN
  4. SOFOSBUVIR [Suspect]
     Active Substance: SOFOSBUVIR
     Indication: CHRONIC HEPATITIS C
     Dosage: 400 MG BOTTLE (HDPE) - 28 TABLETS
     Route: 048
     Dates: start: 20150302, end: 20150810
  5. LAMIVUDINE. [Concomitant]
     Active Substance: LAMIVUDINE
  6. DOLUTEGRAVIR [Concomitant]
     Active Substance: DOLUTEGRAVIR

REACTIONS (3)
  - HIV test positive [Not Recovered/Not Resolved]
  - Virologic failure [Unknown]
  - Drug ineffective [Unknown]

NARRATIVE: CASE EVENT DATE: 20170817
